FAERS Safety Report 8880657 (Version 1)
Quarter: 2012Q4

REPORT INFORMATION
  Report Type: Report from Study
  Country: AR (occurrence: AR)
  Receive Date: 20121101
  Receipt Date: 20121101
  Transmission Date: 20130627
  Serious: Yes (Hospitalization, Other)
  Sender: FDA-Public Use
  Company Number: AR-SANOFI-AVENTIS-200313259GDDC

PATIENT
  Age: 44 Year
  Sex: Female
  Weight: 53 kg

DRUGS (8)
  1. DOCETAXEL [Suspect]
     Indication: BREAST CARCINOMA
     Route: 042
     Dates: start: 20030313, end: 20030416
  2. ERYTHROPOIETIN [Concomitant]
     Indication: PROPHYLAXIS
     Route: 058
     Dates: start: 20030423, end: 20030423
  3. ERYTHROPOIETIN [Concomitant]
     Indication: PROPHYLAXIS
     Route: 058
     Dates: start: 20030425, end: 20030425
  4. ERYTHROPOIETIN [Concomitant]
     Indication: PROPHYLAXIS
     Route: 058
     Dates: start: 20030428, end: 20030428
  5. ERYTHROPOIETIN [Concomitant]
     Indication: PROPHYLAXIS
     Route: 058
     Dates: start: 20030430, end: 20030430
  6. ERYTHROPOIETIN [Concomitant]
     Indication: PROPHYLAXIS
     Route: 058
     Dates: start: 20030502, end: 20030502
  7. ERYTHROPOIETIN [Concomitant]
     Indication: PROPHYLAXIS
     Route: 058
     Dates: start: 20030505, end: 20030505
  8. LENOGRASTIM [Concomitant]
     Indication: PROPHYLAXIS
     Route: 058
     Dates: start: 20030417, end: 20030425

REACTIONS (4)
  - Myelodysplastic syndrome [Not Recovered/Not Resolved]
  - Febrile neutropenia [Recovered/Resolved]
  - Pyrexia [Recovered/Resolved]
  - Neutropenia [Recovered/Resolved]
